FAERS Safety Report 13863063 (Version 2)
Quarter: 2017Q3

REPORT INFORMATION
  Report Type: Spontaneous
  Country: US (occurrence: US)
  Receive Date: 20170814
  Receipt Date: 20170926
  Transmission Date: 20171127
  Serious: No
  Sender: FDA-Public Use
  Company Number: US-ASTRAZENECA-2017SE81539

PATIENT
  Sex: Female

DRUGS (1)
  1. NEXIUM 24HR [Suspect]
     Active Substance: ESOMEPRAZOLE MAGNESIUM
     Dosage: 1 DF, 1X/DAY ( SHE DOES TAKE EACH  MORNING 1 HR BEFORE  EATS)
     Route: 048

REACTIONS (3)
  - Headache [Unknown]
  - Abdominal pain upper [Unknown]
  - Intentional product misuse [Unknown]
